FAERS Safety Report 4910349-1 (Version None)
Quarter: 2006Q1

REPORT INFORMATION
  Report Type: 
  Country: None (occurrence: None)
  Receive Date: 20060209
  Receipt Date: 20060125
  Transmission Date: 20060701
  Serious: Yes (Death)
  Sender: FDA-Public Use
  Company Number: SE200601004664

PATIENT
  Age: 46 Year
  Sex: Male

DRUGS (4)
  1. ZYPREXA [Suspect]
     Indication: SCHIZOAFFECTIVE DISORDER
     Dosage: 20 MG, DAILY (1/D), ORAL
     Route: 048
  2. LITHIUM CARBONATE [Concomitant]
  3. DEPAKENE [Concomitant]
  4. RISPERDAL [Concomitant]

REACTIONS (1)
  - DEATH [None]
